FAERS Safety Report 10238992 (Version 2)
Quarter: 2014Q3

REPORT INFORMATION
  Report Type: Spontaneous
  Country: US (occurrence: None)
  Receive Date: 20140612
  Receipt Date: 20140910
  Transmission Date: 20150326
  Serious: Yes (Hospitalization)
  Sender: FDA-Public Use
  Company Number: UNT-2014-000808

PATIENT
  Age: 62 Year
  Sex: Female
  Weight: 90.2 kg

DRUGS (1)
  1. REMODULIN [Suspect]
     Active Substance: TREPROSTINIL
     Indication: COR PULMONALE CHRONIC
     Route: 041
     Dates: start: 20131029

REACTIONS (3)
  - Brain operation [None]
  - Subdural haematoma [None]
  - Device related sepsis [None]

NARRATIVE: CASE EVENT DATE: 20140404
